FAERS Safety Report 12646039 (Version 1)
Quarter: 2016Q3

REPORT INFORMATION
  Report Type: Report from Study
  Country: US (occurrence: US)
  Receive Date: 20160811
  Receipt Date: 20160811
  Transmission Date: 20161109
  Serious: Yes (Other)
  Sender: FDA-Public Use
  Company Number: US-AMGEN-USASL2016100792

PATIENT
  Age: 64 Year
  Sex: Female

DRUGS (8)
  1. LUNESTA [Suspect]
     Active Substance: ESZOPICLONE
     Indication: PRODUCT USED FOR UNKNOWN INDICATION
     Dosage: 5 MG, UNK
     Route: 065
     Dates: start: 2013
  2. MELATONIN [Suspect]
     Active Substance: MELATONIN
     Dosage: 2 MG, UNK
     Route: 065
  3. AMBIEN [Suspect]
     Active Substance: ZOLPIDEM TARTRATE
     Indication: PRODUCT USED FOR UNKNOWN INDICATION
     Dosage: 5 MG, UNK
     Route: 065
     Dates: start: 2013
  4. AMBIEN [Suspect]
     Active Substance: ZOLPIDEM TARTRATE
     Dosage: 10 MG, UNK
     Route: 065
  5. MELATONIN [Suspect]
     Active Substance: MELATONIN
     Indication: PRODUCT USED FOR UNKNOWN INDICATION
     Dosage: 1 MG, UNK
     Route: 065
  6. LUNESTA [Suspect]
     Active Substance: ESZOPICLONE
     Dosage: 10 MG, UNK
     Route: 065
  7. ENBREL [Suspect]
     Active Substance: ETANERCEPT
     Indication: RHEUMATOID ARTHRITIS
     Dosage: 25 MG, QWK
     Route: 065
  8. MELATONIN [Suspect]
     Active Substance: MELATONIN
     Dosage: 3 MG, UNK
     Route: 065

REACTIONS (17)
  - Insomnia [Unknown]
  - Bone disorder [Unknown]
  - Dental implantation [Unknown]
  - Sinusitis [Unknown]
  - Myalgia [Unknown]
  - Dental prosthesis user [Unknown]
  - Device failure [Unknown]
  - Drug ineffective [Unknown]
  - Device related infection [Unknown]
  - Sinus congestion [Unknown]
  - Headache [Unknown]
  - Fatigue [Not Recovered/Not Resolved]
  - Nasopharyngitis [Not Recovered/Not Resolved]
  - Malaise [Unknown]
  - Infection [Unknown]
  - Productive cough [Recovering/Resolving]
  - Arthralgia [Unknown]

NARRATIVE: CASE EVENT DATE: 2015
